FAERS Safety Report 4868391-5 (Version None)
Quarter: 2005Q4

REPORT INFORMATION
  Report Type: 
  Country: None (occurrence: None)
  Receive Date: 20051229
  Receipt Date: 20051220
  Transmission Date: 20060501
  Serious: Yes (Hospitalization)
  Sender: FDA-Public Use
  Company Number: GB-GLAXOSMITHKLINE-B0404342A

PATIENT
  Age: 92 Year
  Sex: Female

DRUGS (1)
  1. LANOXIN [Suspect]
     Route: 048

REACTIONS (3)
  - AMNESIA [None]
  - CARDIOACTIVE DRUG LEVEL INCREASED [None]
  - CONFUSIONAL STATE [None]
